FAERS Safety Report 14295493 (Version 1)
Quarter: 2017Q4

REPORT INFORMATION
  Report Type: Spontaneous
  Country: US (occurrence: US)
  Receive Date: 20171215
  Receipt Date: 20171215
  Transmission Date: 20180321
  Serious: Yes (Hospitalization)
  Sender: FDA-Public Use
  Company Number: None

PATIENT
  Sex: Male
  Weight: 86.8 kg

DRUGS (1)
  1. LENALIDOMIDE (CC-5013) [Suspect]
     Active Substance: LENALIDOMIDE
     Dates: end: 20171206

REACTIONS (13)
  - Dysphagia [None]
  - Burns third degree [None]
  - Haemorrhage intracranial [None]
  - Contusion [None]
  - Supraventricular tachycardia [None]
  - Rib fracture [None]
  - Accident [None]
  - Eye injury [None]
  - Facial bones fracture [None]
  - Hypoxia [None]
  - Jaw fracture [None]
  - Bradycardia [None]
  - Haematoma [None]

NARRATIVE: CASE EVENT DATE: 20171206
